FAERS Safety Report 8375504-X (Version None)
Quarter: 2012Q1

REPORT INFORMATION
  Report Type: 
  Country: None (occurrence: None)
  Receive Date: 20120323
  Receipt Date: 20110301
  Transmission Date: 20120608
  Serious: Yes (Hospitalization)
  Sender: FDA-Public Use
  Company Number: 163-21880-11030572

PATIENT
  Age: 64 Year
  Sex: Male

DRUGS (3)
  1. REVLIMID [Suspect]
     Indication: MULTIPLE MYELOMA
     Dosage: 25 MG, 1 IN 1 D, PO 15-10MG, DAILY, PO 15 MG, DAILY FOR 21 DAYS, PO
     Route: 048
     Dates: start: 20090211
  2. REVLIMID [Suspect]
     Indication: MULTIPLE MYELOMA
     Dosage: 25 MG, 1 IN 1 D, PO 15-10MG, DAILY, PO 15 MG, DAILY FOR 21 DAYS, PO
     Route: 048
     Dates: start: 20101101
  3. REVLIMID [Suspect]
     Indication: MULTIPLE MYELOMA
     Dosage: 25 MG, 1 IN 1 D, PO 15-10MG, DAILY, PO 15 MG, DAILY FOR 21 DAYS, PO
     Route: 048
     Dates: start: 20100601

REACTIONS (7)
  - INFLUENZA [None]
  - FATIGUE [None]
  - AMNESIA [None]
  - LACTOSE INTOLERANCE [None]
  - DIARRHOEA [None]
  - LEUKOPENIA [None]
  - INSOMNIA [None]
